FAERS Safety Report 8866103 (Version 1)
Quarter: 2012Q4

REPORT INFORMATION
  Report Type: Report from Study
  Country: FR (occurrence: FR)
  Receive Date: 20121025
  Receipt Date: 20121025
  Transmission Date: 20130627
  Serious: Yes (Hospitalization)
  Sender: FDA-Public Use
  Company Number: FR-ASTRAZENECA-2012SE80365

PATIENT
  Age: 28251 Day
  Sex: Female

DRUGS (12)
  1. AZD6140 [Suspect]
     Indication: CORONARY ARTERY DISEASE
     Route: 048
     Dates: start: 20111021
  2. ASA [Concomitant]
     Route: 048
  3. URAPIDIL [Concomitant]
     Indication: CORONARY ARTERY DISEASE
     Route: 048
     Dates: end: 20121009
  4. URAPIDIL [Concomitant]
     Indication: HYPERTENSION
     Route: 048
     Dates: end: 20121009
  5. FUROSEMIDE [Concomitant]
     Indication: CORONARY ARTERY DISEASE
     Route: 048
     Dates: end: 20121009
  6. HYDROCHLOROTHIAZIDE [Concomitant]
     Indication: CORONARY ARTERY DISEASE
     Route: 048
     Dates: end: 20121009
  7. RAMIPRIL [Concomitant]
     Indication: CORONARY ARTERY DISEASE
     Route: 048
     Dates: end: 20121009
  8. RAMIPRIL [Concomitant]
     Indication: HYPERTENSION
     Route: 048
     Dates: end: 20121009
  9. METOPROLOL [Concomitant]
     Indication: CORONARY ARTERY DISEASE
     Route: 048
  10. ATORVASTATINE [Concomitant]
     Indication: DYSLIPIDAEMIA
     Route: 048
  11. AMLODIPINE [Concomitant]
     Indication: CORONARY ARTERY DISEASE
     Route: 048
     Dates: start: 20110917
  12. AMLODIPINE [Concomitant]
     Indication: HYPERTENSION
     Route: 048
     Dates: start: 20110917

REACTIONS (1)
  - Diabetes mellitus [Not Recovered/Not Resolved]
